FAERS Safety Report 18367243 (Version 1)
Quarter: 2020Q4

REPORT INFORMATION
  Report Type: Spontaneous
  Country: US (occurrence: US)
  Receive Date: 20201009
  Receipt Date: 20201009
  Transmission Date: 20210114
  Serious: Yes (Other)
  Sender: FDA-Public Use
  Company Number: 1626962-2020-00002

PATIENT
  Age: 65 Year
  Sex: Female
  Weight: 59.09 kg

DRUGS (1)
  1. T-RELIEF ARTHRITIS TABLETS [Suspect]
     Active Substance: HOMEOPATHICS
     Indication: ARTHRITIS
     Route: 048

REACTIONS (1)
  - Rash [Recovered/Resolved]
